FAERS Safety Report 10301070 (Version 1)
Quarter: 2014Q3

REPORT INFORMATION
  Report Type: Spontaneous
  Country: US (occurrence: US)
  Receive Date: 20140714
  Receipt Date: 20140714
  Transmission Date: 20150326
  Serious: No
  Sender: FDA-Public Use
  Company Number: US-AMGEN INC.-USASP2014051733

PATIENT
  Age: 62 Year
  Sex: Male

DRUGS (1)
  1. ENBREL [Suspect]
     Active Substance: ETANERCEPT
     Indication: ANKYLOSING SPONDYLITIS
     Dosage: 50 MG, QWK
     Route: 058
     Dates: start: 20140620

REACTIONS (5)
  - Pruritus [Unknown]
  - Limb discomfort [Unknown]
  - Erythema [Unknown]
  - Injection site reaction [Unknown]
  - Rash [Unknown]

NARRATIVE: CASE EVENT DATE: 20140620
